FAERS Safety Report 26125621 (Version 3)
Quarter: 2025Q4

REPORT INFORMATION
  Report Type: Spontaneous
  Country: GB (occurrence: GB)
  Receive Date: 20251205
  Receipt Date: 20251226
  Transmission Date: 20260117
  Serious: Yes (Congenital Anomaly, Other)
  Sender: TORRENT PHARMA INC.
  Company Number: None

PATIENT

DRUGS (17)
  1. QUETIAPINE [Suspect]
     Active Substance: QUETIAPINE
     Indication: Product used for unknown indication
     Dosage: MOTHER DOSE: 50MG AT NIGHT ON 20-JAN-2015
     Route: 065
  2. AMOXICILLIN [Suspect]
     Active Substance: AMOXICILLIN
     Indication: Product used for unknown indication
     Dosage: MOTHER DOSE: 1 THREE TIME A DAY VIA UNKNOWN ROUTE FROM 25-SEP-2025 TO 02-OCT-2025 FOR 7 DAY
     Route: 065
  3. BECLOMETHASONE DIPROPIONATE [Suspect]
     Active Substance: BECLOMETHASONE DIPROPIONATE
     Indication: Product used for unknown indication
     Dosage: MOTHER DOSE: 200MICROGRAMS TWICE A DAY ON 28-MAY-2024
     Route: 065
  4. CLOTRIMAZOLE [Suspect]
     Active Substance: CLOTRIMAZOLE
     Indication: Product used for unknown indication
     Dosage: MOTHER DOSE: 200MG AT NIGHT 04-8-2025 TO 11-8-2025 FOR 7 DAYS.
     Route: 065
  5. DULOXETINE [Suspect]
     Active Substance: DULOXETINE
     Indication: Product used for unknown indication
     Dosage: MOTHER DOSE: 60MG DAILY ON 23-FEB-2023
     Route: 065
  6. FOLIC ACID [Suspect]
     Active Substance: FOLIC ACID
     Indication: Product used for unknown indication
     Dosage: MOTHER DOSE: 400 UG
     Route: 065
  7. AMOXICILLIN TRIHYDRATE [Suspect]
     Active Substance: AMOXICILLIN
     Indication: Product used for unknown indication
     Dosage: MOTHER INDICATION: 1 THREE TIMES A DAY  FOR 1 WEEK FROM 25-SEP-2025 TO 02-OCT-2025 FOR 7 DAYS
     Route: 065
  8. ENOXAPARIN SODIUM [Suspect]
     Active Substance: ENOXAPARIN SODIUM
     Indication: Product used for unknown indication
     Dosage: MOTHER DOSE: 40MG DAILY IN 2ND AND 3RD TRIM ON 14-05-25
     Route: 065
  9. VITAMIN D3 [Suspect]
     Active Substance: CHOLECALCIFEROL
     Indication: Product used for unknown indication
     Dosage: MOTHER DOSE: 400UNITS ONCE DAILY ON 20-MAR-2025
     Route: 065
  10. LACTULOSE [Suspect]
     Active Substance: LACTULOSE
     Indication: Product used for unknown indication
     Dosage: MOTHER DOSE: 2.5ML TWICE A DAY ON 09-APR-2025
     Route: 065
  11. POLYETHYLENE GLYCOLS [Suspect]
     Active Substance: POLYETHYLENE GLYCOLS
     Indication: Product used for unknown indication
     Dosage: MOTHER DOSE: 1-2 SACHETS DAILY IN 2ND AND 3RD TRIMESTERS ON 09-APR-2025
     Route: 065
  12. SODIUM CITRATE\SODIUM LAURYL SULFOACETATE [Suspect]
     Active Substance: SODIUM CITRATE\SODIUM LAURYL SULFOACETATE
     Indication: Product used for unknown indication
     Dosage: MOTHER DOSE: 1 AS NEEDED RECTALLY 3RD TRIMESTER ONLY ON 27-AUG-2025
     Route: 065
  13. MIRTAZAPINE [Suspect]
     Active Substance: MIRTAZAPINE
     Indication: Product used for unknown indication
     Dosage: MOTHER DOSE: 45MG AT NIGHT ON 15-JUN-2022
     Route: 065
  14. NITROFURANTOIN [Suspect]
     Active Substance: NITROFURANTOIN
     Indication: Product used for unknown indication
     Dosage: MOTHER DOSE: UNKNOWN, IN 1ST TRIMESTER ONLY
     Route: 065
  15. OMEPRAZOLE [Suspect]
     Active Substance: OMEPRAZOLE
     Indication: Product used for unknown indication
     Dosage: MOTHER DOSE: 40MG DAILY ON 31-JUL-2024
     Route: 065
  16. ACETAMINOPHEN [Suspect]
     Active Substance: ACETAMINOPHEN
     Indication: Product used for unknown indication
     Dosage: IN 1ST TRIMESTER ONLY
     Route: 065
  17. ALBUTEROL [Suspect]
     Active Substance: ALBUTEROL
     Indication: Product used for unknown indication
     Dosage: MOTHER DOSE: 2 PUFFS PRN ON 28-MAY-2024
     Route: 065

REACTIONS (2)
  - Cleft palate [Not Recovered/Not Resolved]
  - Foetal exposure during pregnancy [Unknown]

NARRATIVE: CASE EVENT DATE: 20251101
